FAERS Safety Report 22275981 (Version 2)
Quarter: 2023Q2

REPORT INFORMATION
  Report Type: Report from Study
  Country: JP (occurrence: JP)
  Receive Date: 20230502
  Receipt Date: 20230508
  Transmission Date: 20230722
  Serious: Yes (Death)
  Sender: FDA-Public Use
  Company Number: JP-PFIZER INC-202300176674

PATIENT

DRUGS (6)
  1. OXALIPLATIN [Suspect]
     Active Substance: OXALIPLATIN
     Dosage: 85 MG/M2, CYCLIC, ON DAYS 1, 15, AND 29
     Route: 042
  2. LEUCOVORIN CALCIUM [Suspect]
     Active Substance: LEUCOVORIN CALCIUM
     Dosage: 400 MG/M2, CYCLIC,INTRAVENOUS INFUSION
     Route: 042
  3. FLUOROURACIL [Suspect]
     Active Substance: FLUOROURACIL
     Dosage: 400 MG/M2, CYCLIC, BOLUS
     Route: 042
  4. FLUOROURACIL [Suspect]
     Active Substance: FLUOROURACIL
     Dosage: 2400 MG/M?,CYCLIC, IN A 46-H TO 48-H INFUSION
     Route: 042
  5. ZOLBETUXIMAB [Suspect]
     Active Substance: ZOLBETUXIMAB
     Dosage: 800 MG/M2, CYCLIC, (CYCLE 1, DAY 1),INTRAVENOUS INFUSION
     Route: 042
  6. ZOLBETUXIMAB [Suspect]
     Active Substance: ZOLBETUXIMAB
     Dosage: 600 MG/M2, CYCLIC, (CYCLE 1, DAY 22, AND DAYS 1 AND 22 OF SUBSEQUENT CYCLES), INTRAVENOUS INFUSION
     Route: 042

REACTIONS (1)
  - Death [Fatal]
